FAERS Safety Report 24551807 (Version 1)
Quarter: 2024Q4

REPORT INFORMATION
  Report Type: Spontaneous
  Country: GB (occurrence: GB)
  Receive Date: 20241026
  Receipt Date: 20241026
  Transmission Date: 20250115
  Serious: Yes (Disabling, Other)
  Sender: AUROBINDO
  Company Number: GB-MHRA-TPP52966973C9416958YC1728569146182

PATIENT
  Age: 69 Year
  Sex: Male
  Weight: 73 kg

DRUGS (9)
  1. AMOXICILLIN\CLAVULANIC ACID [Suspect]
     Active Substance: AMOXICILLIN\CLAVULANIC ACID
     Indication: Product used for unknown indication
     Dosage: 625 MILLIGRAM
     Route: 065
  2. RAMIPRIL [Concomitant]
     Active Substance: RAMIPRIL
     Indication: Ill-defined disorder
     Dosage: UNK UNK, ONCE A DAY (TAKE ONE DAILY)
     Route: 065
     Dates: start: 20240411
  3. FLUOROURACIL [Concomitant]
     Active Substance: FLUOROURACIL
     Indication: Ill-defined disorder
     Dosage: UNK UNK, ONCE A DAY (APPLY THINLY ONCE A DAY OR EVERY OTHER DAY)
     Route: 065
     Dates: start: 20240904, end: 20240925
  4. FERROUS FUMARATE [Concomitant]
     Active Substance: FERROUS FUMARATE
     Indication: Ill-defined disorder
     Dosage: UNK UNK, DAILY (TAKE ONE DAILY FOR 3 MONTHS, THEN RECHECK IRON ...)
     Route: 065
     Dates: start: 20240918
  5. ASPIRIN [Concomitant]
     Active Substance: ASPIRIN
     Indication: Ill-defined disorder
     Dosage: UNK UNK, ONCE A DAY (ONE TO BE TAKEN EACH DAY)
     Route: 065
     Dates: start: 20240411
  6. ATORVASTATIN [Concomitant]
     Active Substance: ATORVASTATIN
     Indication: Ill-defined disorder
     Dosage: UNK UNK, ONCE A DAY (ONE TO BE TAKEN AT NIGHT)
     Route: 065
     Dates: start: 20240411
  7. BISOPROLOL [Concomitant]
     Active Substance: BISOPROLOL\BISOPROLOL FUMARATE
     Indication: Ill-defined disorder
     Dosage: UNK UNK, ONCE A DAY (ONE TO BE TAKEN EACH DAY)
     Route: 065
     Dates: start: 20240411
  8. NITROGLYCERIN [Concomitant]
     Active Substance: NITROGLYCERIN
     Indication: Ill-defined disorder
     Dosage: UNK (1 -2 SPRAY SUBLINGUAL FOR CHEST/JAW PAINS.)
     Route: 060
     Dates: start: 20240411
  9. ACETAMINOPHEN\CODEINE PHOSPHATE [Concomitant]
     Active Substance: ACETAMINOPHEN\CODEINE PHOSPHATE
     Indication: Ill-defined disorder
     Dosage: UNK UNK, FOUR TIMES/DAY (ONE OR TWO TO BE TAKEN FOUR TIMES A DAY WHEN RE...)
     Route: 065
     Dates: start: 20240411

REACTIONS (1)
  - Chest pain [Unknown]
